FAERS Safety Report 9756770 (Version 1)
Quarter: 2013Q4

REPORT INFORMATION
  Report Type: Spontaneous
  Country: US (occurrence: US)
  Receive Date: 20131213
  Receipt Date: 20131213
  Transmission Date: 20140711
  Serious: Yes (Disabling, Other)
  Sender: FDA-Public Use
  Company Number: US-ELI_LILLY_AND_COMPANY-US201312002534

PATIENT
  Sex: Female

DRUGS (6)
  1. ADCIRCA [Suspect]
     Dosage: 20 MG, QD
     Route: 048
     Dates: start: 20131116, end: 20131117
  2. COUMADIN [Concomitant]
     Dosage: 5 MG, UNK
  3. TORSEMIDE [Concomitant]
     Dosage: 40 MG, UNK
  4. PREDNISONE [Concomitant]
     Dosage: 15 MG, UNK
  5. CILOSTAZOL [Concomitant]
     Dosage: 100 MG, UNK
  6. DIGOXIN [Concomitant]
     Dosage: 0.125 MG, UNK

REACTIONS (1)
  - Blindness [Unknown]
